FAERS Safety Report 6157140-9 (Version None)
Quarter: 2009Q2

REPORT INFORMATION
  Report Type: 
  Country: None (occurrence: None)
  Receive Date: 20090413
  Receipt Date: 20090408
  Transmission Date: 20091009
  Serious: Yes (Hospitalization)
  Sender: FDA-Public Use
  Company Number: SP02337

PATIENT
  Age: 7 Year
  Sex: Male

DRUGS (2)
  1. MESALAMINE [Suspect]
     Indication: INFLAMMATORY BOWEL DISEASE
     Dosage: 30 MG/KG, 3 TIMES DAILY, ORAL
     Route: 048
     Dates: start: 20020101, end: 20040101
  2. MESALAMINE [Suspect]
     Indication: INFLAMMATORY BOWEL DISEASE
     Dosage: 250 MG/KG (250 MG/KG, 1 IN 1 D), RECTAL
     Route: 054
     Dates: start: 20020101, end: 20040101

REACTIONS (5)
  - BONE MARROW EOSINOPHILIC LEUKOCYTE COUNT INCREASED [None]
  - CONDITION AGGRAVATED [None]
  - EOSINOPHILIA [None]
  - INFLAMMATORY BOWEL DISEASE [None]
  - WHITE BLOOD CELL COUNT INCREASED [None]
